FAERS Safety Report 6114382-6 (Version None)
Quarter: 2009Q1

REPORT INFORMATION
  Report Type: 
  Country: None (occurrence: None)
  Receive Date: 20090313
  Receipt Date: 20090309
  Transmission Date: 20090719
  Serious: Yes (Other)
  Sender: FDA-Public Use
  Company Number: US-JNJFOC-20090302676

PATIENT
  Age: 54 Year
  Sex: Female

DRUGS (2)
  1. LEVAQUIN [Suspect]
     Indication: UPPER RESPIRATORY TRACT INFECTION
     Route: 048
  2. ASPIRIN [Concomitant]
     Indication: ISCHAEMIC HEART DISEASE PROPHYLAXIS
     Route: 065

REACTIONS (6)
  - ALTERED STATE OF CONSCIOUSNESS [None]
  - BLOOD GLUCOSE ABNORMAL [None]
  - BURNING SENSATION [None]
  - ERYTHEMA [None]
  - OXYGEN SATURATION DECREASED [None]
  - WHITE BLOOD CELL COUNT ABNORMAL [None]
